FAERS Safety Report 18235509 (Version 1)
Quarter: 2020Q3

REPORT INFORMATION
  Report Type: Spontaneous
  Country: DK (occurrence: DK)
  Receive Date: 20200905
  Receipt Date: 20200905
  Transmission Date: 20201103
  Serious: Yes (Hospitalization)
  Sender: FDA-Public Use
  Company Number: DK-TEVA-2020-DK-1822857

PATIENT
  Age: 73 Year
  Sex: Male

DRUGS (27)
  1. ALNOK [Concomitant]
     Active Substance: CETIRIZINE HYDROCHLORIDE
     Indication: SEASONAL ALLERGY
     Dosage: STRENGTH: 10 MG.
     Route: 048
     Dates: start: 20190424
  2. MUCOLYSIN [Concomitant]
     Active Substance: TIOPRONIN
     Indication: SECRETION DISCHARGE
     Dosage: STRENGTH: 200 MG.
     Route: 048
     Dates: start: 20200508
  3. NOVORAPID [Concomitant]
     Active Substance: INSULIN ASPART
     Indication: TYPE 2 DIABETES MELLITUS
     Dosage: STRENGTH: 100 E/ML. DOSE: 0?6 IE MORNING, NOON AND EVENING.
     Route: 058
  4. PREDNISOLON ^ACTAVIS^ [Suspect]
     Active Substance: PREDNISOLONE
     Indication: ADRENOCORTICAL STEROID THERAPY
     Dosage: STRENGTH: 25 MG, UNIT DOSE: 37.5MG
     Route: 048
     Dates: start: 20200801, end: 20200805
  5. TRESIBA 100 FLEXTOUCH [Concomitant]
     Indication: TYPE 2 DIABETES MELLITUS
     Dosage: STRENGTH: 100 E/ML., UNIT DOSE: 18IU
     Route: 058
  6. ZOCOR [Concomitant]
     Active Substance: SIMVASTATIN
     Indication: HYPERCHOLESTEROLAEMIA
     Dosage: 40 MG.
     Route: 048
     Dates: start: 20140810
  7. PAMOL [Concomitant]
     Active Substance: ACETAMINOPHEN
     Indication: PAIN
     Dosage: STRENGTH: 500 MG. UNIT DOSE: 1000 MG
     Route: 048
  8. FURIX [Concomitant]
     Indication: RENAL FAILURE
     Dosage: STRENGTH: 40 MG. UNIT DOSE: 320 MG
     Route: 048
     Dates: start: 20180411
  9. NICORETTE INVISI [Concomitant]
     Active Substance: NICOTINE
     Indication: EX-TOBACCO USER
     Dosage: STRENGTH: 10 MG/16 HOURS., UNIT DOSE: 1 DF
     Route: 003
     Dates: start: 20190410
  10. INNOHEP [Concomitant]
     Active Substance: TINZAPARIN SODIUM
     Indication: THROMBOSIS PROPHYLAXIS
     Dosage: STRENGTH: 10.000 ANTI XA IE/ML. DOSE: 0.1?1 ML AS NECESSARY.
     Route: 058
     Dates: start: 20180626
  11. ASCORBIC ACID. [Concomitant]
     Active Substance: ASCORBIC ACID
     Indication: VITAMIN SUPPLEMENTATION
     Dosage: 80 MG.
     Route: 048
     Dates: start: 20180505
  12. DOLOL [Concomitant]
     Active Substance: TRAMADOL
     Indication: PAIN
     Dosage: 50 MG.
     Route: 048
     Dates: start: 20151007
  13. IMOZOP [Concomitant]
     Active Substance: ZOPICLONE
     Indication: INSOMNIA
     Dosage: 7.5 MG.
     Route: 048
  14. APOVIT B?COMBIN STAERK [Concomitant]
     Indication: VITAMIN SUPPLEMENTATION
     Dosage: STRENGTH: UNKNOWN, 1 DOSAGE FORMS
     Route: 048
     Dates: start: 20180505
  15. OXYCODONHYDROCHLORID ^ACTAVIS^ [Concomitant]
     Active Substance: OXYCODONE HYDROCHLORIDE
     Indication: PAIN
     Dosage: STRENGTH: 5 MG.
     Route: 048
     Dates: start: 20180921
  16. CLORIOCARD [Concomitant]
     Active Substance: CLOPIDOGREL HYDROCHLORIDE
     Indication: THROMBOSIS PROPHYLAXIS
     Dosage: STRENGTH: 75 MG.
     Route: 048
     Dates: start: 20140515
  17. PANTOPRAZOLE [Concomitant]
     Active Substance: PANTOPRAZOLE
     Indication: GASTRIC ULCER
     Dosage: STRENGTH: 20 MG., UNIT DOSE: 40MG
     Route: 048
     Dates: start: 20170621
  18. NEURONTIN [Concomitant]
     Active Substance: GABAPENTIN
     Indication: NEURALGIA
     Dosage: STRENGTH: 100 MG., UNIT DOSE: 200MG
     Route: 048
     Dates: start: 20200110
  19. ALFUZOSIN [Concomitant]
     Active Substance: ALFUZOSIN
     Indication: DYSURIA
     Dosage: STRENGTH: 10 MG.
     Route: 048
     Dates: start: 20181106
  20. MOVICOL [Concomitant]
     Active Substance: POLYETHYLENE GLYCOL 3350\POTASSIUM CHLORIDE\SODIUM BICARBONATE\SODIUM CHLORIDE
     Indication: CONSTIPATION
     Dosage: 1 DOSAGE FORMS
     Route: 048
  21. BENFEROL [Concomitant]
     Indication: VITAMIN SUPPLEMENTATION
     Dosage: STRENGTH: 0.625 MG. UNIT DOSE: 1.25 MG
     Route: 048
     Dates: start: 20191101
  22. CARVEDILOL. [Concomitant]
     Active Substance: CARVEDILOL
     Indication: HYPERTENSION
     Dosage: 12.5 MG.
     Route: 048
     Dates: start: 20200715
  23. FOLIMET [Concomitant]
     Active Substance: FOLIC ACID
     Indication: VITAMIN SUPPLEMENTATION
     Dosage: 5 MG.
     Route: 048
     Dates: start: 20180505
  24. ROCALTROL [Concomitant]
     Active Substance: CALCITRIOL
     Indication: VITAMIN SUPPLEMENTATION
     Dosage: STRENGTH: 0.25 MICROGRAMS.
     Route: 048
     Dates: start: 20191213
  25. HEPARIN ^LEO^ [Concomitant]
     Indication: HAEMODIALYSIS
     Dosage: STRENGTH: 5000 IE/ML., UNIT DOSE: 1ML
     Route: 042
     Dates: start: 20180626
  26. SERTRALINE [Concomitant]
     Active Substance: SERTRALINE HYDROCHLORIDE
     Indication: DEPRESSION
     Dosage: STRENGTH: 50 MG., UNIT DOSE: 75MG
     Route: 048
  27. ARANESP [Concomitant]
     Active Substance: DARBEPOETIN ALFA
     Indication: ANAEMIA
     Dosage: STRENGTH: 20 MICROGRAMS. UNIT DOSE: 0.5 ML
     Route: 042
     Dates: start: 20180509

REACTIONS (2)
  - Hyperglycaemia [Recovered/Resolved]
  - Thirst [Unknown]

NARRATIVE: CASE EVENT DATE: 202008
